FAERS Safety Report 14238701 (Version 9)
Quarter: 2019Q3

REPORT INFORMATION
  Report Type: Spontaneous
  Country: US (occurrence: US)
  Receive Date: 20171130
  Receipt Date: 20190806
  Transmission Date: 20191004
  Serious: Yes (Other)
  Sender: FDA-Public Use
  Company Number: US-PFIZER INC-2017428915

PATIENT
  Age: 72 Year
  Sex: Female
  Weight: 81 kg

DRUGS (17)
  1. IBRANCE [Suspect]
     Active Substance: PALBOCICLIB
     Dosage: 100 MG, CYCLIC (DAILY FOR 21 DAYS AND THEN OFF FOR 7 DAYS)
     Route: 048
     Dates: start: 201705, end: 201901
  2. IBRANCE [Suspect]
     Active Substance: PALBOCICLIB
     Dosage: 125 MG, CYCLIC (ONCE A DAY FOR 21 DAYS WITH 7 DAYS OFF)
     Route: 048
     Dates: start: 201705, end: 201901
  3. VITAMIN D3 [Concomitant]
     Active Substance: CHOLECALCIFEROL
     Dosage: 2000 IU, 1X/DAY
     Route: 048
  4. ATORVASTATIN [Concomitant]
     Active Substance: ATORVASTATIN
     Indication: BLOOD CHOLESTEROL ABNORMAL
     Dosage: 10 MG, 1X/DAY(AT BEDTIME)
     Route: 048
  5. ONDANSETRON [Concomitant]
     Active Substance: ONDANSETRON
     Indication: VOMITING
  6. IBRANCE [Suspect]
     Active Substance: PALBOCICLIB
     Indication: BREAST CANCER FEMALE
     Dosage: 125 MG, UNK
  7. VITAMIN C ASC ACID [Concomitant]
     Indication: SUPPLEMENTATION THERAPY
     Dosage: 500 MG, 1X/DAY
     Route: 048
  8. ONDANSETRON [Concomitant]
     Active Substance: ONDANSETRON
     Indication: NAUSEA
     Dosage: 8 MG, AS NEEDED
     Route: 048
  9. AFINITOR [Concomitant]
     Active Substance: EVEROLIMUS
     Dosage: 5 MG, 1X/DAY
     Route: 048
  10. AFINITOR [Concomitant]
     Active Substance: EVEROLIMUS
     Dosage: 10 MG, 1X/DAY
     Route: 048
  11. FASLODEX [Suspect]
     Active Substance: FULVESTRANT
     Dosage: UNK
  12. LIALDA [Concomitant]
     Active Substance: MESALAMINE
     Dosage: 4.8 G, DAILY
     Route: 048
  13. METOPROLOL SUCCINATE. [Concomitant]
     Active Substance: METOPROLOL SUCCINATE
     Dosage: 50 MG, 1X/DAY
     Route: 048
  14. DEXAMETHASONE. [Concomitant]
     Active Substance: DEXAMETHASONE
     Dosage: UNK UNK, AS NEEDED (3.3MG/5 ML (100MG/NS 150 ML)
     Route: 048
  15. EXEMESTANE. [Concomitant]
     Active Substance: EXEMESTANE
     Dosage: 25 MG, 1X/DAY
     Route: 048
  16. IBRANCE [Suspect]
     Active Substance: PALBOCICLIB
     Dosage: 20 MG, 1X/DAY
     Dates: start: 20170603
  17. SPIRONOLACTONE. [Concomitant]
     Active Substance: SPIRONOLACTONE
     Indication: DIURETIC THERAPY
     Dosage: 25 MG, 1X/DAY
     Route: 048

REACTIONS (10)
  - Alopecia [Unknown]
  - Colitis [Recovering/Resolving]
  - Cellulitis [Recovered/Resolved]
  - Nausea [Unknown]
  - Neoplasm progression [Unknown]
  - White blood cell count decreased [Unknown]
  - Tumour marker increased [Not Recovered/Not Resolved]
  - Pain in extremity [Unknown]
  - Full blood count decreased [Recovered/Resolved]
  - Fatigue [Unknown]

NARRATIVE: CASE EVENT DATE: 20170708
